FAERS Safety Report 6069166-4 (Version None)
Quarter: 2009Q1

REPORT INFORMATION
  Report Type: 
  Country: None (occurrence: None)
  Receive Date: 20090206
  Receipt Date: 20090129
  Transmission Date: 20090719
  Serious: Yes (Hospitalization)
  Sender: FDA-Public Use
  Company Number: US-GILEAD-2008-0019514

PATIENT
  Sex: Female

DRUGS (1)
  1. LETAIRIS [Suspect]
     Route: 048
     Dates: start: 20081106, end: 20081210

REACTIONS (1)
  - ADVERSE DRUG REACTION [None]
